FAERS Safety Report 12994265 (Version 3)
Quarter: 2017Q2

REPORT INFORMATION
  Report Type: Spontaneous
  Country: US (occurrence: US)
  Receive Date: 20161202
  Receipt Date: 20170619
  Transmission Date: 20170830
  Serious: Yes (Hospitalization)
  Sender: FDA-Public Use
  Company Number: US-TAKEDA-2016MPI010202

PATIENT
  Age: 81 Year
  Sex: Female
  Weight: 98.87 kg

DRUGS (2)
  1. REVLIMID [Concomitant]
     Active Substance: LENALIDOMIDE
     Indication: PLASMA CELL MYELOMA
     Dosage: UNK
     Route: 065
  2. NINLARO [Suspect]
     Active Substance: IXAZOMIB
     Indication: PLASMA CELL MYELOMA
     Dosage: 4 MG, UNK
     Route: 048
     Dates: start: 20160527, end: 201701

REACTIONS (3)
  - Neuropathy peripheral [Unknown]
  - Drug dose omission [Unknown]
  - Back pain [Unknown]

NARRATIVE: CASE EVENT DATE: 20161124
